FAERS Safety Report 10186538 (Version 2)
Quarter: 2014Q2

REPORT INFORMATION
  Report Type: Spontaneous
  Country: TR (occurrence: TR)
  Receive Date: 20140521
  Receipt Date: 20140602
  Transmission Date: 20141212
  Serious: Yes (Other)
  Sender: FDA-Public Use
  Company Number: PHHY2014TR057763

PATIENT
  Age: 45 Year
  Sex: Male

DRUGS (3)
  1. TEGRETOL [Suspect]
     Indication: EPILEPSY
     Dosage: 200 MG, BID(MORNING AND EVENING
     Route: 048
  2. GLUKOFEN [Concomitant]
     Dosage: 1000 MG, UNK
  3. LIPANTHYL [Concomitant]
     Dosage: 275 MG, UNK

REACTIONS (1)
  - Epilepsy [Recovered/Resolved]
